FAERS Safety Report 24824192 (Version 1)
Quarter: 2025Q1

REPORT INFORMATION
  Report Type: Spontaneous
  Country: FI (occurrence: FI)
  Receive Date: 20250109
  Receipt Date: 20250109
  Transmission Date: 20250408
  Serious: Yes (Death)
  Sender: TEVA
  Company Number: None

PATIENT
  Age: 82 Year
  Sex: Male

DRUGS (1)
  1. CAPECITABINE [Suspect]
     Active Substance: CAPECITABINE
     Indication: Colon cancer
     Dosage: 1500 MG X 2
     Route: 048
     Dates: start: 20240212, end: 20240303

REACTIONS (6)
  - Cardiac arrest [Fatal]
  - Diarrhoea [Fatal]
  - Rash macular [Fatal]
  - Nausea [Fatal]
  - Hypoaesthesia [Fatal]
  - Vomiting [Fatal]

NARRATIVE: CASE EVENT DATE: 20240212
